FAERS Safety Report 4692717-9 (Version None)
Quarter: 2005Q2

REPORT INFORMATION
  Report Type: 
  Country: None (occurrence: None)
  Receive Date: 20050617
  Receipt Date: 20050606
  Transmission Date: 20051028
  Serious: Yes (Death, Hospitalization)
  Sender: FDA-Public Use
  Company Number: JP-JNJFOC-20050600331

PATIENT
  Sex: Female

DRUGS (15)
  1. FENTANYL [Suspect]
     Indication: CANCER PAIN
     Dates: start: 20050225, end: 20050306
  2. DUROTEP [Suspect]
     Route: 062
     Dates: start: 20050306, end: 20050406
  3. DUROTEP [Suspect]
     Indication: CANCER PAIN
     Route: 062
     Dates: start: 20050306, end: 20050406
  4. FUROSEMIDE [Concomitant]
  5. FUROSEMIDE [Concomitant]
  6. FUROSEMIDE [Concomitant]
  7. FUROSEMIDE [Concomitant]
     Indication: URINE OUTPUT DECREASED
  8. HYDROXYZINE HYDROCHLORIDE [Concomitant]
  9. HYDROXYZINE HYDROCHLORIDE [Concomitant]
  10. HYDROXYZINE HYDROCHLORIDE [Concomitant]
  11. MORPHINE HCL ELIXIR [Concomitant]
  12. MORPHINE HCL ELIXIR [Concomitant]
  13. MORPHINE HCL ELIXIR [Concomitant]
  14. MORPHINE HCL ELIXIR [Concomitant]
  15. MORPHINE HCL ELIXIR [Concomitant]
     Indication: CANCER PAIN

REACTIONS (8)
  - CONSTIPATION [None]
  - ILEUS [None]
  - MALIGNANT NEOPLASM PROGRESSION [None]
  - NAUSEA [None]
  - OVARIAN CANCER [None]
  - PYREXIA [None]
  - SOMNOLENCE [None]
  - VOMITING [None]
